FAERS Safety Report 4842336-6 (Version None)
Quarter: 2005Q4

REPORT INFORMATION
  Report Type: 
  Country: None (occurrence: None)
  Receive Date: 20051128
  Receipt Date: 20051111
  Transmission Date: 20060501
  Serious: Yes (Other)
  Sender: FDA-Public Use
  Company Number: TRP_0651_2005

PATIENT
  Age: 47 Year
  Sex: Female

DRUGS (11)
  1. RIBASPHERE [Suspect]
     Indication: HEPATITIS C
     Dosage: DF PO
     Route: 048
     Dates: start: 20050107
  2. PEG-INTRON [Suspect]
     Indication: HEPATITIS C
     Dosage: DF SC
     Route: 058
     Dates: start: 20050107
  3. CARAFATE [Concomitant]
  4. ALOE VERA (75%) [Concomitant]
  5. COMBIPATCH (.05 - .014 MG) [Concomitant]
  6. DETROL [Concomitant]
  7. HYDROCHLORIC ACID 2% [Concomitant]
  8. HYDROCODONE 5-25 MG/5 ML [Concomitant]
  9. LEVBID [Concomitant]
  10. NEURONTIN [Concomitant]
  11. PRILOSEC [Concomitant]

REACTIONS (4)
  - CIRCUMSTANCE OR INFORMATION CAPABLE OF LEADING TO MEDICATION ERROR [None]
  - POOR QUALITY DRUG ADMINISTERED [None]
  - POST PROCEDURAL NAUSEA [None]
  - PULMONARY CONGESTION [None]
